FAERS Safety Report 10342201 (Version 4)
Quarter: 2014Q4

REPORT INFORMATION
  Report Type: Not Available
  Country: US (occurrence: US)
  Receive Date: 20140725
  Receipt Date: 20141203
  Transmission Date: 20150528
  Serious: No
  Sender: FDA-Public Use
  Company Number: US-LUPIN PHARMACEUTICALS INC.-E2B_00001600

PATIENT
  Age: 64 Year
  Sex: Female
  Weight: 69.01 kg

DRUGS (5)
  1. OMEGA-3-ACID ETHYL ESTERS (LOVAZA) [Concomitant]
     Indication: PRODUCT USED FOR UNKNOWN INDICATION
     Route: 065
  2. ACETYSALICYLIC ACID (ASPIRIN) [Concomitant]
     Indication: PRODUCT USED FOR UNKNOWN INDICATION
  3. CALCIUM+VITAMIN D [Concomitant]
     Active Substance: CALCIUM\VITAMIN D
     Indication: PRODUCT USED FOR UNKNOWN INDICATION
     Dosage: 600 MG/UNKNOWN
  4. OMEGA-3-ACID ETHYL ESTERS (LOVAZA) [Concomitant]
  5. PRAVASTATIN SODIUM TABLETS USP 10 MG [Suspect]
     Active Substance: PRAVASTATIN SODIUM
     Indication: BLOOD CHOLESTEROL INCREASED
     Dates: start: 201307, end: 20131102

REACTIONS (2)
  - Dental caries [Not Recovered/Not Resolved]
  - Dry mouth [Recovered/Resolved]

NARRATIVE: CASE EVENT DATE: 201307
